FAERS Safety Report 16324335 (Version 1)
Quarter: 2019Q2

REPORT INFORMATION
  Report Type: Spontaneous
  Country: GB (occurrence: GB)
  Receive Date: 20190517
  Receipt Date: 20190517
  Transmission Date: 20190711
  Serious: Yes (Other)
  Sender: FDA-Public Use
  Company Number: GB-ACCORD-127918

PATIENT
  Age: 62 Year
  Sex: Male
  Weight: 82.6 kg

DRUGS (12)
  1. CLOPIDOGREL [Concomitant]
     Active Substance: CLOPIDOGREL BISULFATE
  2. BISOPROLOL [Concomitant]
     Active Substance: BISOPROLOL
  3. TOCILIZUMAB. [Concomitant]
     Active Substance: TOCILIZUMAB
  4. ASPIRIN. [Concomitant]
     Active Substance: ASPIRIN
  5. METFORMIN [Concomitant]
     Active Substance: METFORMIN HYDROCHLORIDE
  6. MONOMIL XL [Concomitant]
     Active Substance: ISOSORBIDE MONONITRATE
  7. METHOTREXATE. [Suspect]
     Active Substance: METHOTREXATE
     Indication: PRODUCT USED FOR UNKNOWN INDICATION
  8. RAMIPRIL. [Concomitant]
     Active Substance: RAMIPRIL
  9. FOLIC ACID. [Concomitant]
     Active Substance: FOLIC ACID
  10. PRAVASTATIN. [Concomitant]
     Active Substance: PRAVASTATIN
  11. NICORANDIL [Concomitant]
     Active Substance: NICORANDIL
  12. MALARONE [Interacting]
     Active Substance: ATOVAQUONE\PROGUANIL HYDROCHLORIDE
     Indication: MALARIA PROPHYLAXIS
     Dosage: 250/100MG
     Route: 048
     Dates: start: 20190120, end: 20190218

REACTIONS (2)
  - Alanine aminotransferase increased [Recovering/Resolving]
  - Drug interaction [Unknown]

NARRATIVE: CASE EVENT DATE: 20190228
